FAERS Safety Report 19424375 (Version 3)
Quarter: 2023Q4

REPORT INFORMATION
  Report Type: Spontaneous
  Country: US (occurrence: US)
  Receive Date: 20210616
  Receipt Date: 20231227
  Transmission Date: 20240110
  Serious: Yes (Hospitalization)
  Sender: FDA-Public Use
  Company Number: US-SK LIFE SCIENCE, INC.-SKPVG-2021-000510

PATIENT

DRUGS (13)
  1. XCOPRI [Suspect]
     Active Substance: CENOBAMATE
     Indication: Seizure
     Dosage: 12.5 MILLIGRAM, QD
     Route: 048
     Dates: start: 20210331, end: 20210412
  2. XCOPRI [Suspect]
     Active Substance: CENOBAMATE
     Dosage: 25 MILLIGRAM, QD
     Route: 048
     Dates: start: 20210413
  3. XCOPRI [Suspect]
     Active Substance: CENOBAMATE
     Dosage: 50 MILLIGRAM
     Route: 048
     Dates: start: 2021
  4. XCOPRI [Suspect]
     Active Substance: CENOBAMATE
     Dosage: 50/100 MILLIGRAM, QD
     Route: 048
  5. ONFI [Suspect]
     Active Substance: CLOBAZAM
     Indication: Seizure
     Dosage: UNK
     Route: 065
     Dates: start: 20230918
  6. ONFI [Suspect]
     Active Substance: CLOBAZAM
     Dosage: REDUCED THE DOSE OF CLOBAZAM IN HALF
     Route: 065
  7. ONFI [Suspect]
     Active Substance: CLOBAZAM
     Dosage: INCREASE THE CLOBAZAM, AND PUT IT BACK TO THE ORIGINAL DOSE
     Route: 065
  8. NP THYROID [Concomitant]
     Active Substance: LEVOTHYROXINE\LIOTHYRONINE
     Indication: Thyroid disorder
     Dosage: 90 MILLIGRAM, QD, MORNING
     Route: 048
     Dates: start: 2010
  9. CARBAMAZEPINE [Concomitant]
     Active Substance: CARBAMAZEPINE
     Indication: Epilepsy
     Dosage: 200 MILLIGRAM, BID, ONE PILL
     Route: 048
     Dates: start: 1970, end: 2023
  10. DIVALPROEX SODIUM [Concomitant]
     Active Substance: DIVALPROEX SODIUM
     Indication: Epilepsy
     Dosage: 250 MILLIGRAM, BID
     Route: 048
     Dates: start: 1970
  11. FELBAMATE [Concomitant]
     Active Substance: FELBAMATE
     Indication: Product used for unknown indication
     Dosage: 600 MILLIGRAM, TID
     Route: 048
     Dates: start: 1990
  12. FELBAMATE [Concomitant]
     Active Substance: FELBAMATE
     Dosage: 600 MILLIGRAM (HALF TABLET), TID
     Route: 048
  13. LAMOTRIGINE [Concomitant]
     Active Substance: LAMOTRIGINE
     Indication: Epilepsy
     Dosage: 150 MILLIGRAM, QD (HALF AT AM AND HALF DURING BED)
     Route: 048
     Dates: start: 1990

REACTIONS (11)
  - Seizure [Recovered/Resolved]
  - Electric shock sensation [Recovering/Resolving]
  - Incorrect dose administered [Recovered/Resolved]
  - Seizure [Recovered/Resolved]
  - Seizure [Recovered/Resolved]
  - Dysstasia [Recovered/Resolved]
  - Photopsia [Unknown]
  - Aura [Recovered/Resolved]
  - Asthenia [Recovered/Resolved]
  - Aphasia [Recovered/Resolved]
  - Drug interaction [Recovered/Resolved]

NARRATIVE: CASE EVENT DATE: 20210413
